FAERS Safety Report 9699681 (Version 2)
Quarter: 2013Q4

REPORT INFORMATION
  Report Type: Spontaneous
  Country: US (occurrence: US)
  Receive Date: 20131120
  Receipt Date: 20131120
  Transmission Date: 20140711
  Serious: No
  Sender: FDA-Public Use
  Company Number: US-TEVA-365190USA

PATIENT
  Age: 23 Year
  Sex: Female
  Weight: 59.47 kg

DRUGS (2)
  1. PARAGARD 380A [Suspect]
     Route: 015
     Dates: start: 20120912, end: 20121016
  2. PARAGARD 380A [Suspect]
     Dates: start: 20121016

REACTIONS (2)
  - Uterine pain [Recovered/Resolved]
  - Device expulsion [Recovered/Resolved]
